FAERS Safety Report 13621203 (Version 2)
Quarter: 2017Q2

REPORT INFORMATION
  Report Type: Spontaneous
  Country: BR (occurrence: BR)
  Receive Date: 20170607
  Receipt Date: 20170622
  Transmission Date: 20170830
  Serious: Yes (Other)
  Sender: FDA-Public Use
  Company Number: BR-PFIZER INC-2017245366

PATIENT
  Age: 77 Year
  Sex: Female
  Weight: 63 kg

DRUGS (4)
  1. CONCOR [Concomitant]
     Active Substance: BISOPROLOL FUMARATE
     Indication: HYPERTENSION
     Dosage: 5 MG, 1X/DAY
     Route: 048
  2. TECTA [Suspect]
     Active Substance: PANTOPRAZOLE MAGNESIUM
     Indication: OESOPHAGEAL CANDIDIASIS
     Dosage: 40 MG, 1X/DAY
     Route: 048
     Dates: start: 201704
  3. VALSARTAN. [Concomitant]
     Active Substance: VALSARTAN
     Indication: HYPERTENSION
     Dosage: 160 MG, 1X/DAY
     Route: 048
  4. EUTIROX [Concomitant]
     Active Substance: LEVOTHYROXINE SODIUM
     Indication: HYPOTHYROIDISM
     Dosage: 50 MG, 1X/DAY
     Route: 048

REACTIONS (2)
  - Product use in unapproved indication [Unknown]
  - Arrhythmia [Recovered/Resolved]

NARRATIVE: CASE EVENT DATE: 201704
